FAERS Safety Report 15720082 (Version 1)
Quarter: 2018Q4

REPORT INFORMATION
  Report Type: Spontaneous
  Country: JM (occurrence: JM)
  Receive Date: 20181213
  Receipt Date: 20181213
  Transmission Date: 20190205
  Serious: Yes (Other)
  Sender: FDA-Public Use
  Company Number: JM-JNJFOC-20181213598

PATIENT
  Age: 6 Decade
  Sex: Female

DRUGS (2)
  1. DABIGATRAN [Concomitant]
     Active Substance: DABIGATRAN
     Route: 065
  2. XARELTO [Suspect]
     Active Substance: RIVAROXABAN
     Indication: ATRIAL FIBRILLATION
     Route: 048

REACTIONS (1)
  - Atrial thrombosis [Unknown]
